FAERS Safety Report 5274062-6 (Version None)
Quarter: 2007Q1

REPORT INFORMATION
  Report Type: 
  Country: None (occurrence: None)
  Receive Date: 20070323
  Receipt Date: 20070313
  Transmission Date: 20070707
  Serious: Yes (Hospitalization, Other)
  Sender: FDA-Public Use
  Company Number: JP-MERCK-0703USA03527

PATIENT
  Age: 70 Year
  Sex: Female

DRUGS (2)
  1. HYZAAR [Suspect]
     Indication: HYPERTENSION
     Route: 048
     Dates: start: 20070214, end: 20070301
  2. COZAAR [Concomitant]
     Route: 048
     Dates: end: 20070214

REACTIONS (2)
  - ASTHENIA [None]
  - BLOOD CREATINE PHOSPHOKINASE INCREASED [None]
